FAERS Safety Report 8022618-X (Version None)
Quarter: 2012Q1

REPORT INFORMATION
  Report Type: 
  Country: None (occurrence: None)
  Receive Date: 20120104
  Receipt Date: 20111220
  Transmission Date: 20120608
  Serious: Yes (Other)
  Sender: FDA-Public Use
  Company Number: GB-GLAXOSMITHKLINE-B0770932A

PATIENT
  Age: 48 Year
  Sex: Male

DRUGS (3)
  1. FLUTICASONE PROPIONATE/SALMETEROL [Suspect]
     Indication: ASTHMA
     Dosage: 1000MCG PER DAY
     Route: 065
  2. VENTOLIN [Suspect]
     Indication: ASTHMA
     Route: 065
  3. THEOPHYLLINE [Suspect]
     Indication: CHRONIC OBSTRUCTIVE PULMONARY DISEASE
     Route: 065

REACTIONS (3)
  - ASTHMA [None]
  - OBSTRUCTIVE AIRWAYS DISORDER [None]
  - CHRONIC OBSTRUCTIVE PULMONARY DISEASE [None]
